FAERS Safety Report 9287690 (Version 1)
Quarter: 2013Q2

REPORT INFORMATION
  Report Type: Report from Study
  Country: CA (occurrence: CA)
  Receive Date: 20130514
  Receipt Date: 20130514
  Transmission Date: 20140414
  Serious: Yes (Other)
  Sender: FDA-Public Use
  Company Number: CA-JNJFOC-20130505058

PATIENT
  Age: 54 Year
  Sex: Female
  Weight: 73 kg

DRUGS (8)
  1. REMICADE [Suspect]
     Indication: CROHN^S DISEASE
     Dosage: 3RD DOSE
     Route: 042
     Dates: start: 20130308
  2. REMICADE [Suspect]
     Indication: CROHN^S DISEASE
     Route: 042
     Dates: start: 20130123
  3. OMNARIS [Concomitant]
     Route: 065
  4. RAMIPRIL [Concomitant]
     Route: 065
  5. VENTOLIN [Concomitant]
     Route: 065
  6. HYDROCHLOROTHIAZIDE [Concomitant]
     Route: 065
  7. CHOLESTYRAMINE [Concomitant]
     Route: 065
  8. ACLASTA [Concomitant]
     Route: 065

REACTIONS (2)
  - Local swelling [Recovered/Resolved]
  - Limb injury [Unknown]
